FAERS Safety Report 9778899 (Version 1)
Quarter: 2013Q4

REPORT INFORMATION
  Report Type: Spontaneous
  Country: US (occurrence: US)
  Receive Date: 20131223
  Receipt Date: 20131223
  Transmission Date: 20140711
  Serious: No
  Sender: FDA-Public Use
  Company Number: US-TEVA-451994USA

PATIENT
  Age: 19 Year
  Sex: Female

DRUGS (3)
  1. COPAXONE [Suspect]
     Indication: MULTIPLE SCLEROSIS
     Dosage: 20 MILLIGRAM DAILY;
     Dates: start: 201310
  2. OMEPRAZOLE [Concomitant]
  3. FLONASE [Concomitant]

REACTIONS (2)
  - Injection site pain [Recovering/Resolving]
  - Injection site erythema [Recovering/Resolving]
